FAERS Safety Report 7646624 (Version 3)
Quarter: 2013Q4

REPORT INFORMATION
  Report Type: Spontaneous
  Country: US (occurrence: US)
  Receive Date: 20101029
  Receipt Date: 20131226
  Transmission Date: 20140711
  Serious: Yes (Hospitalization, Other)
  Sender: FDA-Public Use
  Company Number: US-BAYER-201037939NA

PATIENT
  Age: 31 Year
  Sex: Female
  Weight: 103.86 kg

DRUGS (16)
  1. YASMIN [Suspect]
     Indication: CONTRACEPTION
     Dosage: UNK
  2. ALBUTEROL [Concomitant]
     Dosage: UNK UNK, PRN
  3. FUROSEMIDE [Concomitant]
     Dosage: 20 MG, QD
     Route: 048
     Dates: start: 2006
  4. PSEUDOEPHEDRINE [Concomitant]
     Dosage: UNK UNK, BID
     Route: 048
     Dates: start: 200609
  5. AVELOX [Concomitant]
     Dosage: 400 MG, BID
     Route: 048
     Dates: start: 200603
  6. PHENAVENT [Concomitant]
     Dosage: UNK UNK, BID
     Route: 048
     Dates: start: 200610
  7. CRANTEX LA [Concomitant]
     Dosage: UNK UNK, BID
     Route: 048
     Dates: start: 200610
  8. CEPHALEXIN [Concomitant]
     Dosage: 500 MG, TID
     Route: 048
     Dates: start: 2006
  9. CLARITHROMYCIN [Concomitant]
     Dosage: 500 MG, BID
     Route: 048
     Dates: start: 2006
  10. METOCLOPRAMIDE [Concomitant]
     Dosage: 10 MG, TID
     Route: 048
     Dates: start: 200708
  11. CEFUROXIME [Concomitant]
     Dosage: 500 MG, BID
     Route: 048
     Dates: start: 200707
  12. ALLEGRA-D [Concomitant]
     Dosage: UNK
     Route: 048
  13. LASIX [Concomitant]
  14. FLOVENT [Concomitant]
  15. LORCET [Concomitant]
  16. PHENERGAN [Concomitant]

REACTIONS (7)
  - Gallbladder disorder [Unknown]
  - Cholecystitis chronic [None]
  - Influenza like illness [None]
  - Panic attack [None]
  - Anxiety [None]
  - Pain [None]
  - Abdominal pain [Unknown]
